FAERS Safety Report 7367033-7 (Version None)
Quarter: 2011Q1

REPORT INFORMATION
  Report Type: 
  Country: None (occurrence: None)
  Receive Date: 20110317
  Receipt Date: 20110317
  Transmission Date: 20110831
  Serious: Yes (Hospitalization)
  Sender: FDA-Public Use
  Company Number: None

PATIENT
  Age: 49 Year
  Sex: Female
  Weight: 92.9874 kg

DRUGS (12)
  1. K-DUR [Concomitant]
  2. ZOLPIDEM TARTRATE [Concomitant]
  3. RITALIN [Concomitant]
  4. DEXAMETHASONE 2 MG TABLETS UNKNOWN [Suspect]
     Indication: ANAPLASTIC ASTROCYTOMA
     Dosage: DEXAMETHASONE DAILY PO
     Route: 048
     Dates: start: 20101230, end: 20110316
  5. DELSYN COUGH SYRUP [Concomitant]
  6. RADIATION THERAPY [Concomitant]
  7. MAGNESIUM OXIDE [Concomitant]
  8. MUCINEX [Concomitant]
  9. ARSENIC TRIOXIDE [Suspect]
     Indication: ANAPLASTIC ASTROCYTOMA
     Dosage: ARSENIC TRIOXIDE BIWEEKLY IV DRIP
     Route: 041
     Dates: start: 20110124, end: 20110311
  10. TEMZOLOMIDE [Concomitant]
  11. COMPAZINE [Concomitant]
  12. KEPPRA [Concomitant]

REACTIONS (9)
  - MYOPATHY [None]
  - CUSHINGOID [None]
  - HEADACHE [None]
  - FALL [None]
  - MUSCULAR WEAKNESS [None]
  - DEHYDRATION [None]
  - DIARRHOEA [None]
  - TACHYCARDIA [None]
  - COUGH [None]
